FAERS Safety Report 5389495-7 (Version None)
Quarter: 2007Q3

REPORT INFORMATION
  Report Type: 
  Country: None (occurrence: None)
  Receive Date: 20070717
  Receipt Date: 20070705
  Transmission Date: 20080115
  Serious: Yes (Hospitalization, Other)
  Sender: FDA-Public Use
  Company Number: CA-PFIZER INC-2007054710

PATIENT
  Sex: Male

DRUGS (9)
  1. SU-011,248 [Suspect]
     Indication: RENAL CELL CARCINOMA STAGE UNSPECIFIED
     Route: 048
  2. CHOLESTEROL- AND TRIGLYCERIDE REDUCERS [Concomitant]
  3. INSULIN [Concomitant]
  4. NORVASC [Concomitant]
  5. HYDROCHLOROTHIAZIDE [Concomitant]
  6. METOPROLOL SUCCINATE [Concomitant]
  7. AVANDIA [Concomitant]
  8. DIAMICRON [Concomitant]
  9. EFFEXOR [Concomitant]

REACTIONS (4)
  - ACUTE MYOCARDIAL INFARCTION [None]
  - BLOOD CHOLESTEROL INCREASED [None]
  - LIPIDS INCREASED [None]
  - RENAL IMPAIRMENT [None]
